FAERS Safety Report 20730216 (Version 1)
Quarter: 2022Q2

REPORT INFORMATION
  Report Type: Spontaneous
  Country: FR (occurrence: FR)
  Receive Date: 20220420
  Receipt Date: 20220420
  Transmission Date: 20220721
  Serious: Yes (Other)
  Sender: FDA-Public Use
  Company Number: FR-009507513-2203FRA010891

PATIENT
  Age: 66 Year
  Sex: Male

DRUGS (3)
  1. CARBOPLATIN [Suspect]
     Active Substance: CARBOPLATIN
     Dosage: 4 COURSES
  2. PACLITAXEL [Suspect]
     Active Substance: PACLITAXEL
     Dosage: 4 COURSES
  3. KEYTRUDA [Suspect]
     Active Substance: PEMBROLIZUMAB
     Dosage: 5 COURSES

REACTIONS (1)
  - Miller Fisher syndrome [Unknown]

NARRATIVE: CASE EVENT DATE: 20210601
